FAERS Safety Report 10410450 (Version 1)
Quarter: 2014Q3

REPORT INFORMATION
  Report Type: Spontaneous
  Country: US (occurrence: US)
  Receive Date: 20140826
  Receipt Date: 20140826
  Transmission Date: 20150326
  Serious: Yes (Hospitalization)
  Sender: FDA-Public Use
  Company Number: US-GLAXOSMITHKLINE-A1085510A

PATIENT
  Age: 74 Year
  Sex: Female

DRUGS (11)
  1. ESTRADIOL PATCH [Concomitant]
  2. SYNTHROID [Concomitant]
     Active Substance: LEVOTHYROXINE SODIUM
  3. BREO ELLIPTA [Suspect]
     Active Substance: FLUTICASONE FUROATE\VILANTEROL TRIFENATATE
     Indication: CHRONIC OBSTRUCTIVE PULMONARY DISEASE
     Dosage: 1PUFF PER DAY
     Route: 055
     Dates: start: 20140813
  4. ADVAIR HFA [Suspect]
     Active Substance: FLUTICASONE PROPIONATE\SALMETEROL XINAFOATE
     Indication: ASTHMA
     Dosage: 1PUFF TWICE PER DAY
     Route: 055
     Dates: end: 20140812
  5. PREVACID [Concomitant]
     Active Substance: LANSOPRAZOLE
  6. BLOOD PRESSURE MEDICATION [Concomitant]
     Active Substance: UNSPECIFIED INGREDIENT
  7. HORMONE REPLACEMENT THERAPY [Concomitant]
     Active Substance: UNSPECIFIED INGREDIENT
  8. COZAAR [Concomitant]
     Active Substance: LOSARTAN POTASSIUM
  9. ALBUTEROL/IPRATROPIUM [Suspect]
     Active Substance: ALBUTEROL\IPRATROPIUM
     Route: 065
  10. VALACYCLOVIR [Concomitant]
     Active Substance: VALACYCLOVIR HYDROCHLORIDE
  11. PROGESTERONE. [Concomitant]
     Active Substance: PROGESTERONE

REACTIONS (5)
  - Dyspnoea [Not Recovered/Not Resolved]
  - Drug ineffective [Not Recovered/Not Resolved]
  - Asthma [Unknown]
  - Feeling abnormal [Not Recovered/Not Resolved]
  - Wheezing [Not Recovered/Not Resolved]
